FAERS Safety Report 24370542 (Version 1)
Quarter: 2024Q3

REPORT INFORMATION
  Report Type: Report from Study
  Country: DK (occurrence: DK)
  Receive Date: 20240927
  Receipt Date: 20240927
  Transmission Date: 20241017
  Serious: Yes (Hospitalization)
  Sender: SERVIER
  Company Number: DK-SERVIER-S24011749

PATIENT

DRUGS (2)
  1. PEGASPARGASE [Suspect]
     Active Substance: PEGASPARGASE
     Indication: B precursor type acute leukaemia
     Dosage: UNK
     Route: 065
  2. MERCAPTOPURINE [Suspect]
     Active Substance: MERCAPTOPURINE
     Indication: B precursor type acute leukaemia
     Dosage: UNK
     Route: 065

REACTIONS (2)
  - Venoocclusive liver disease [Unknown]
  - Thrombocytopenia [Unknown]
